FAERS Safety Report 16226312 (Version 4)
Quarter: 2023Q2

REPORT INFORMATION
  Report Type: Spontaneous
  Country: NL (occurrence: NL)
  Receive Date: 20190423
  Receipt Date: 20230626
  Transmission Date: 20230721
  Serious: Yes (Death, Hospitalization, Other)
  Sender: FDA-Public Use
  Company Number: NL-AUROBINDO-AUR-APL-2019-021657

PATIENT
  Age: 56 Year
  Sex: Male

DRUGS (7)
  1. PREDNISONE [Suspect]
     Active Substance: PREDNISONE
     Indication: Interstitial lung disease
     Dosage: UNK (HIGH DOSE)
     Route: 065
  2. PREDNISONE [Suspect]
     Active Substance: PREDNISONE
     Indication: Musculoskeletal pain
  3. PREDNISONE [Suspect]
     Active Substance: PREDNISONE
     Indication: Respiratory failure
  4. PREDNISONE [Suspect]
     Active Substance: PREDNISONE
     Indication: Myocarditis
  5. ENALAPRIL [Suspect]
     Active Substance: ENALAPRIL
     Indication: Musculoskeletal pain
     Dosage: UNK
     Route: 065
  6. SULFAMETHOXAZOLE\TRIMETHOPRIM [Suspect]
     Active Substance: SULFAMETHOXAZOLE\TRIMETHOPRIM
     Indication: Musculoskeletal pain
     Dosage: UNK
     Route: 065
  7. CYCLOPHOSPHAMIDE [Suspect]
     Active Substance: CYCLOPHOSPHAMIDE
     Indication: Systemic scleroderma
     Dosage: 1 DOSAGE FORM, 1 MONTH
     Route: 042

REACTIONS (9)
  - Systemic scleroderma [Fatal]
  - Lung disorder [Fatal]
  - Pyrexia [Fatal]
  - Drug ineffective [Unknown]
  - Respiratory failure [Recovered/Resolved]
  - Hypertensive nephropathy [Recovering/Resolving]
  - Product use in unapproved indication [Unknown]
  - Interstitial lung disease [Recovered/Resolved]
  - Myocarditis [Recovered/Resolved]
